FAERS Safety Report 11146157 (Version 1)
Quarter: 2015Q2

REPORT INFORMATION
  Report Type: Spontaneous
  Country: ES (occurrence: ES)
  Receive Date: 20150528
  Receipt Date: 20150528
  Transmission Date: 20150821
  Serious: Yes (Other)
  Sender: FDA-Public Use
  Company Number: ES-WATSON-2015-10255

PATIENT
  Age: 14 Month
  Sex: Male

DRUGS (11)
  1. VECURONIUM BROMIDE (WATSON LABORATORIES) [Suspect]
     Active Substance: VECURONIUM BROMIDE
     Dosage: 0.1 MG/KG, Q1H
     Route: 051
  2. ERYTHROMYCIN. [Concomitant]
     Active Substance: ERYTHROMYCIN
     Indication: PRODUCT USED FOR UNKNOWN INDICATION
     Dosage: UNK
     Route: 065
  3. PIPERACILLIN/TAZOBACTAM [Concomitant]
     Active Substance: PIPERACILLIN SODIUM\TAZOBACTAM SODIUM
     Indication: PRODUCT USED FOR UNKNOWN INDICATION
     Dosage: UNK
     Route: 065
  4. FUROSEMIDE. [Concomitant]
     Active Substance: FUROSEMIDE
     Indication: PRODUCT USED FOR UNKNOWN INDICATION
     Dosage: UNK
     Route: 065
  5. MIDAZOLAM [Concomitant]
     Active Substance: MIDAZOLAM\MIDAZOLAM HYDROCHLORIDE
     Indication: SEDATIVE THERAPY
     Dosage: PERFUSION
     Route: 051
  6. CEFOTAXIME [Concomitant]
     Active Substance: CEFOTAXIME\CEFOTAXIME SODIUM
     Indication: PRODUCT USED FOR UNKNOWN INDICATION
     Dosage: UNK
     Route: 065
  7. VANCOMYCIN [Concomitant]
     Active Substance: VANCOMYCIN
     Indication: PRODUCT USED FOR UNKNOWN INDICATION
     Dosage: UNK
     Route: 065
  8. VECURONIUM BROMIDE (WATSON LABORATORIES) [Suspect]
     Active Substance: VECURONIUM BROMIDE
     Dosage: 0.05 MG/KG/H, PERFUSION FOR A FEW HOURS
     Route: 051
  9. AMIKACIN [Concomitant]
     Active Substance: AMIKACIN
     Indication: PRODUCT USED FOR UNKNOWN INDICATION
     Dosage: UNK
     Route: 065
  10. VECURONIUM BROMIDE (WATSON LABORATORIES) [Suspect]
     Active Substance: VECURONIUM BROMIDE
     Indication: MUSCLE RELAXANT THERAPY
     Dosage: INTERMITTENT ADMINISTRATION - BOLUSES
     Route: 051
  11. KETAMINE [Concomitant]
     Active Substance: KETAMINE
     Indication: SEDATIVE THERAPY
     Dosage: PERFUSION
     Route: 051

REACTIONS (2)
  - Weaning failure [Recovered/Resolved]
  - Neuromuscular block prolonged [Recovered/Resolved]
